FAERS Safety Report 5506559-5 (Version None)
Quarter: 2007Q4

REPORT INFORMATION
  Report Type: 
  Country: None (occurrence: None)
  Receive Date: 20071105
  Receipt Date: 20071102
  Transmission Date: 20080405
  Serious: Yes (Hospitalization)
  Sender: FDA-Public Use
  Company Number: B0493824A

PATIENT
  Age: 35 Year
  Sex: Male

DRUGS (2)
  1. CLAMOXYL [Suspect]
     Indication: STREPTOCOCCAL INFECTION
     Dosage: 1TAB SINGLE DOSE
     Route: 048
     Dates: start: 20070406, end: 20070406
  2. IBUPROFEN [Suspect]
     Indication: STREPTOCOCCAL INFECTION
     Dosage: 1TAB SINGLE DOSE
     Route: 048
     Dates: start: 20070406, end: 20070406

REACTIONS (7)
  - ANAPHYLACTIC SHOCK [None]
  - ASTHENIA [None]
  - BLOOD IMMUNOGLOBULIN E INCREASED [None]
  - EYELID OEDEMA [None]
  - MALAISE [None]
  - RASH GENERALISED [None]
  - TRYPTASE INCREASED [None]
